FAERS Safety Report 11538153 (Version 1)
Quarter: 2015Q3

REPORT INFORMATION
  Report Type: Spontaneous
  Country: US (occurrence: US)
  Receive Date: 20150922
  Receipt Date: 20150922
  Transmission Date: 20151125
  Serious: Yes (Other)
  Sender: FDA-Public Use
  Company Number: US-IMPAX LABORATORIES, INC-2015-IPXL-00960

PATIENT
  Sex: Female

DRUGS (1)
  1. BUPROPION HYDROCHLORIDE SR [Suspect]
     Active Substance: BUPROPION HYDROCHLORIDE
     Indication: PRODUCT USED FOR UNKNOWN INDICATION
     Dosage: 150 MG, 1 /DAY
     Route: 065
     Dates: start: 2012, end: 201405

REACTIONS (13)
  - Central nervous system lesion [Unknown]
  - Gingival discolouration [Unknown]
  - Insomnia [Unknown]
  - Aggression [Unknown]
  - Breath odour [Unknown]
  - Blood glucose fluctuation [Unknown]
  - Abnormal behaviour [Unknown]
  - Chest pain [Unknown]
  - Maternal exposure during pregnancy [Unknown]
  - Skin odour abnormal [Unknown]
  - Respiratory rate increased [Unknown]
  - Pruritus [Unknown]
  - Rash [Unknown]
